FAERS Safety Report 22035743 (Version 3)
Quarter: 2023Q1

REPORT INFORMATION
  Report Type: Report from Study
  Country: US (occurrence: US)
  Receive Date: 20230224
  Receipt Date: 20230316
  Transmission Date: 20230418
  Serious: Yes (Other)
  Sender: FDA-Public Use
  Company Number: US-JAZZ-2022-US-002613

PATIENT
  Sex: Female

DRUGS (23)
  1. XYREM [Suspect]
     Active Substance: SODIUM OXYBATE
     Indication: Narcolepsy
     Dosage: 4.5 GRAM, BID
     Route: 048
     Dates: start: 201011, end: 201107
  2. XYREM [Suspect]
     Active Substance: SODIUM OXYBATE
     Indication: Cataplexy
     Dosage: DOSE ADJUSTMENT
     Route: 048
     Dates: start: 201107, end: 201405
  3. XYREM [Suspect]
     Active Substance: SODIUM OXYBATE
     Indication: Somnolence
     Dosage: 1.5 GRAM AT BEDTIME AND 4.5 GM 2+1/2-4 HOURS LATER
     Route: 048
     Dates: start: 201407
  4. VIIBRYD [Suspect]
     Active Substance: VILAZODONE HYDROCHLORIDE
     Indication: Product used for unknown indication
     Dosage: UNK
  5. CYANOCOBALAMIN [Concomitant]
     Active Substance: CYANOCOBALAMIN
     Dosage: 1000 MCG/ML
     Dates: start: 20140415
  6. BUSPIRONE HCL [Concomitant]
     Active Substance: BUSPIRONE HYDROCHLORIDE
     Dosage: OTH
     Dates: start: 20160524
  7. VITAMIN D2 [Concomitant]
     Active Substance: ERGOCALCIFEROL
     Dosage: 50,000 UNIT
     Dates: start: 20160608
  8. HYDROCHLOROTHIAZIDE\VALSARTAN [Concomitant]
     Active Substance: HYDROCHLOROTHIAZIDE\VALSARTAN
     Dosage: 80-12.5 MG
     Dates: start: 20191105
  9. PROVIGIL [Concomitant]
     Active Substance: MODAFINIL
     Dosage: UNK
  10. PROVIGIL [Concomitant]
     Active Substance: MODAFINIL
     Dosage: UNK
  11. NAPROSYN [Concomitant]
     Active Substance: NAPROXEN
     Dosage: UNK
  12. NAPROSYN [Concomitant]
     Active Substance: NAPROXEN
     Dosage: UNK
  13. HYDROCORTISONE ACETATE [Concomitant]
     Active Substance: HYDROCORTISONE ACETATE
     Dosage: UNK
  14. HYDROCORTISONE ACETATE [Concomitant]
     Active Substance: HYDROCORTISONE ACETATE
     Dosage: UNK
  15. POTASSIUM CHLORIDE [Concomitant]
     Active Substance: POTASSIUM CHLORIDE
     Dosage: UNK
  16. POTASSIUM CHLORIDE [Concomitant]
     Active Substance: POTASSIUM CHLORIDE
     Dosage: UNK
  17. FUROSEMIDE [Concomitant]
     Active Substance: FUROSEMIDE
     Dosage: UNK
  18. FUROSEMIDE [Concomitant]
     Active Substance: FUROSEMIDE
     Dosage: UNK
  19. OMEPRAZOLE [Concomitant]
     Active Substance: OMEPRAZOLE
     Dosage: UNK
  20. OMEPRAZOLE [Concomitant]
     Active Substance: OMEPRAZOLE
     Dosage: UNK
  21. CRESTOR [Concomitant]
     Active Substance: ROSUVASTATIN CALCIUM
     Dosage: UNK
  22. CRESTOR [Concomitant]
     Active Substance: ROSUVASTATIN CALCIUM
     Dosage: UNK
  23. ESTRADIOL [Concomitant]
     Active Substance: ESTRADIOL

REACTIONS (14)
  - Hypokalaemia [Unknown]
  - Vitamin B12 deficiency [Unknown]
  - Psoriasis [Unknown]
  - Gastrooesophageal reflux disease [Unknown]
  - Adjustment disorder [Unknown]
  - Sinusitis [Unknown]
  - Dysuria [Unknown]
  - Palpitations [Unknown]
  - Limb injury [Unknown]
  - Hyperlipidaemia [Unknown]
  - Drug hypersensitivity [Unknown]
  - Food allergy [Unknown]
  - Anaemia vitamin B12 deficiency [Unknown]
  - Product administration interrupted [Unknown]
